FAERS Safety Report 7825104-2 (Version None)
Quarter: 2011Q4

REPORT INFORMATION
  Report Type: 
  Country: None (occurrence: None)
  Receive Date: 20111019
  Receipt Date: 20101006
  Transmission Date: 20120403
  Serious: Yes (Hospitalization)
  Sender: FDA-Public Use
  Company Number: PR-BRISTOL-MYERS SQUIBB COMPANY-15321821

PATIENT
  Age: 63 Year
  Sex: Female

DRUGS (5)
  1. AVALIDE [Suspect]
     Dosage: 1 D.F:150/12.5MG
  2. PREMPRO [Concomitant]
  3. AVAPRO [Concomitant]
  4. NEXIUM [Concomitant]
  5. PEPCID [Concomitant]

REACTIONS (1)
  - BLOOD POTASSIUM DECREASED [None]
